FAERS Safety Report 7093816-7 (Version None)
Quarter: 2010Q4

REPORT INFORMATION
  Report Type: 
  Country: None (occurrence: None)
  Receive Date: 20101110
  Receipt Date: 20101108
  Transmission Date: 20110411
  Serious: Yes (Death, Hospitalization)
  Sender: FDA-Public Use
  Company Number: A0769805A

PATIENT
  Age: 49 Year
  Sex: Female

DRUGS (1)
  1. AVANDIA [Suspect]
     Indication: TYPE 2 DIABETES MELLITUS
     Route: 065
     Dates: start: 19990101, end: 20060712

REACTIONS (1)
  - MYOCARDIAL INFARCTION [None]
